FAERS Safety Report 9464784 (Version 3)
Quarter: 2013Q3

REPORT INFORMATION
  Report Type: Spontaneous
  Country: JP (occurrence: JP)
  Receive Date: 20130819
  Receipt Date: 20130827
  Transmission Date: 20140515
  Serious: Yes (Hospitalization)
  Sender: FDA-Public Use
  Company Number: JP-ABBOTT-13P-087-1132486-00

PATIENT
  Age: 15 Year
  Sex: Male

DRUGS (5)
  1. HUMIRA [Suspect]
     Indication: CROHN^S DISEASE
     Route: 058
     Dates: start: 20130418, end: 20130418
  2. HUMIRA [Suspect]
  3. HUMIRA [Suspect]
  4. MESALAZINE [Concomitant]
     Indication: CROHN^S DISEASE
     Route: 048
     Dates: start: 201302
  5. PARENTERAL NUTRITION [Concomitant]
     Indication: CROHN^S DISEASE
     Dates: start: 201302

REACTIONS (1)
  - Vasculitis [Unknown]
